FAERS Safety Report 7305377-5 (Version None)
Quarter: 2011Q1

REPORT INFORMATION
  Report Type: 
  Country: None (occurrence: None)
  Receive Date: 20110222
  Receipt Date: 20110216
  Transmission Date: 20110831
  Serious: Yes (Life-Threatening, Hospitalization)
  Sender: FDA-Public Use
  Company Number: PHHY2011US08430

PATIENT
  Sex: Male

DRUGS (7)
  1. PROCARDIA [Suspect]
  2. EILTIADEM CD [Concomitant]
  3. PROTONIX [Concomitant]
  4. TEKTURNA HCT [Suspect]
     Dosage: 300/25 MG ONE PER DAY
     Route: 048
     Dates: start: 20100831, end: 20110121
  5. TEKTURNA HCT [Suspect]
     Indication: HYPERTENSION
     Dosage: 150 MG, UNK
  6. POTASSIUM [Concomitant]
  7. ASPIRIN [Concomitant]

REACTIONS (7)
  - FEELING ABNORMAL [None]
  - BLOOD PRESSURE DIASTOLIC DECREASED [None]
  - LOSS OF CONSCIOUSNESS [None]
  - ANGIOPATHY [None]
  - CONVULSION [None]
  - ROAD TRAFFIC ACCIDENT [None]
  - LIMB DISCOMFORT [None]
